FAERS Safety Report 20230462 (Version 1)
Quarter: 2021Q4

REPORT INFORMATION
  Report Type: Report from Study
  Country: NL (occurrence: NL)
  Receive Date: 20211227
  Receipt Date: 20211227
  Transmission Date: 20220303
  Serious: Yes (Other)
  Sender: FDA-Public Use
  Company Number: NL-AstraZeneca-2021A886405

PATIENT
  Sex: Male
  Weight: 7.2 kg

DRUGS (3)
  1. SYNAGIS [Suspect]
     Active Substance: PALIVIZUMAB
     Indication: Respiratory syncytial virus infection
     Route: 030
     Dates: start: 20210730
  2. DEXAMETHASONE [Concomitant]
     Active Substance: DEXAMETHASONE
     Indication: Subglottic laryngitis
     Dosage: ONCE/SINGLE ADMINISTRATION
  3. ALBUTEROL [Concomitant]
     Active Substance: ALBUTEROL
     Indication: Subglottic laryngitis
     Dosage: ONCE/SINGLE ADMINISTRATION
     Route: 065

REACTIONS (1)
  - Subglottic laryngitis [Recovered/Resolved]

NARRATIVE: CASE EVENT DATE: 20210101
